FAERS Safety Report 7372909-0 (Version None)
Quarter: 2011Q1

REPORT INFORMATION
  Report Type: 
  Country: None (occurrence: None)
  Receive Date: 20110324
  Receipt Date: 20110318
  Transmission Date: 20110831
  Serious: Yes (Other)
  Sender: FDA-Public Use
  Company Number: FR-PFIZER INC-2011026613

PATIENT
  Age: 32 Year
  Sex: Female
  Weight: 68 kg

DRUGS (3)
  1. BIRODOGYL [Concomitant]
     Indication: TOOTH DISORDER
  2. ZELITREX [Concomitant]
     Indication: TOOTH DISORDER
  3. NEURONTIN [Suspect]
     Indication: SOMNAMBULISM
     Dosage: 400 MG, 1X/DAY
     Dates: start: 20100701, end: 20101224

REACTIONS (1)
  - HENOCH-SCHONLEIN PURPURA [None]
